FAERS Safety Report 7826720-4 (Version None)
Quarter: 2011Q4

REPORT INFORMATION
  Report Type: 
  Country: None (occurrence: None)
  Receive Date: 20111020
  Receipt Date: 20110805
  Transmission Date: 20120403
  Serious: No
  Sender: FDA-Public Use
  Company Number: US-MYLANLABS-2011S1016621

PATIENT
  Age: 55 Year
  Sex: Female

DRUGS (3)
  1. CYMBALTA [Concomitant]
     Indication: AFFECTIVE DISORDER
     Route: 048
  2. LAMOTRIGINE [Suspect]
     Indication: MOOD SWINGS
     Route: 048
     Dates: end: 20110401
  3. LAMOTRIGINE [Suspect]
     Route: 048
     Dates: start: 20110401, end: 20110501

REACTIONS (3)
  - PRURITUS [None]
  - SKIN BURNING SENSATION [None]
  - RASH [None]
